FAERS Safety Report 18687150 (Version 3)
Quarter: 2022Q3

REPORT INFORMATION
  Report Type: Report from Study
  Country: US (occurrence: US)
  Receive Date: 20201231
  Receipt Date: 20220705
  Transmission Date: 20221026
  Serious: Yes (Other)
  Sender: FDA-Public Use
  Company Number: NVSC2020US344189

PATIENT
  Age: 53 Year
  Sex: Female

DRUGS (3)
  1. COSENTYX [Suspect]
     Active Substance: SECUKINUMAB
     Indication: Psoriatic arthropathy
     Dosage: 150 MG, QMO
     Route: 058
  2. COSENTYX [Suspect]
     Active Substance: SECUKINUMAB
     Indication: Rheumatoid arthritis
     Dosage: 300 MG, OTHER (Q WEEK FOR FIVE WEEKS, THEN Q FOUR WEEKS)
     Route: 058
     Dates: start: 20201109
  3. COSENTYX [Suspect]
     Active Substance: SECUKINUMAB
     Indication: Psoriatic arthropathy

REACTIONS (7)
  - Triple negative breast cancer [Unknown]
  - Metastases to liver [Unknown]
  - Metastases to lymph nodes [Unknown]
  - Metastases to bone [Unknown]
  - Metastases to skin [Unknown]
  - Neoplasm malignant [Unknown]
  - Product use in unapproved indication [Unknown]

NARRATIVE: CASE EVENT DATE: 20210108
